FAERS Safety Report 8343739-8 (Version None)
Quarter: 2012Q2

REPORT INFORMATION
  Report Type: 
  Country: None (occurrence: None)
  Receive Date: 20120508
  Receipt Date: 20120508
  Transmission Date: 20120825
  Serious: Yes (Life-Threatening, Hospitalization)
  Sender: FDA-Public Use
  Company Number: None

PATIENT
  Age: 61 Year
  Sex: Male
  Weight: 83.007 kg

DRUGS (1)
  1. ANCEF [Suspect]
     Indication: KNEE ARTHROPLASTY
     Dosage: GM
     Route: 042

REACTIONS (1)
  - ANAPHYLACTIC SHOCK [None]
